FAERS Safety Report 7727379-7 (Version None)
Quarter: 2011Q3

REPORT INFORMATION
  Report Type: 
  Country: None (occurrence: None)
  Receive Date: 20110902
  Receipt Date: 20110825
  Transmission Date: 20111222
  Serious: Yes (Hospitalization, Other)
  Sender: FDA-Public Use
  Company Number: BR-PFIZER INC-2007080654

PATIENT
  Age: 59 Year
  Sex: Female
  Weight: 68 kg

DRUGS (7)
  1. VARENICLINE TARTRATE [Interacting]
     Indication: TOBACCO ABUSE
  2. OMEPRAZOLE [Concomitant]
     Dates: end: 20070901
  3. NOVALGINA [Concomitant]
     Dates: end: 20070901
  4. EFFEXOR [Interacting]
     Dosage: 150 MG, 1X/DAY
     Route: 048
     Dates: start: 20070301
  5. VARENICLINE TARTRATE [Interacting]
     Indication: SMOKING CESSATION THERAPY
     Route: 048
     Dates: start: 20070816, end: 20070922
  6. ATORVASTATIN CALCIUM [Suspect]
     Indication: DYSLIPIDAEMIA
     Dosage: UNK
     Route: 048
     Dates: start: 20040101, end: 20070901
  7. ATORVASTATIN CALCIUM [Suspect]
     Indication: BLOOD CHOLESTEROL INCREASED

REACTIONS (17)
  - ILL-DEFINED DISORDER [None]
  - VASCULITIS [None]
  - RENAL IMPAIRMENT [None]
  - HYPERSENSITIVITY [None]
  - LOW DENSITY LIPOPROTEIN INCREASED [None]
  - DERMATITIS [None]
  - SKIN LESION [None]
  - DRUG INTERACTION [None]
  - OSTEOPOROSIS [None]
  - MALAISE [None]
  - HAEMATURIA [None]
  - LIVER DISORDER [None]
  - AUTOIMMUNE DISORDER [None]
  - PYREXIA [None]
  - MYALGIA [None]
  - DRUG ERUPTION [None]
  - TRANSAMINASES ABNORMAL [None]
